FAERS Safety Report 19146231 (Version 1)
Quarter: 2021Q2

REPORT INFORMATION
  Report Type: Spontaneous
  Country: LB (occurrence: LB)
  Receive Date: 20210416
  Receipt Date: 20210416
  Transmission Date: 20210717
  Serious: Yes (Other)
  Sender: FDA-Public Use
  Company Number: LB-SUN PHARMACEUTICAL INDUSTRIES LTD-2021R1-291701

PATIENT
  Age: 68 Year
  Sex: Female

DRUGS (1)
  1. PREDNISONE. [Suspect]
     Active Substance: PREDNISONE
     Indication: MESENTERIC PANNICULITIS
     Dosage: 40 MILLIGRAM, DAILY
     Route: 065

REACTIONS (2)
  - Hyperglycaemia [Unknown]
  - Neuropathy peripheral [Unknown]
